FAERS Safety Report 14806274 (Version 1)
Quarter: 2018Q2

REPORT INFORMATION
  Report Type: Spontaneous
  Country: FR (occurrence: FR)
  Receive Date: 20180425
  Receipt Date: 20180425
  Transmission Date: 20180711
  Serious: Yes (Hospitalization)
  Sender: FDA-Public Use
  Company Number: FR-JNJFOC-20180422868

PATIENT
  Age: 16 Year
  Sex: Male
  Weight: 79 kg

DRUGS (2)
  1. REMICADE [Suspect]
     Active Substance: INFLIXIMAB
     Indication: UVEITIS
     Route: 042
     Dates: start: 201610, end: 20180322
  2. POLARAMINE [Concomitant]
     Active Substance: DEXCHLORPHENIRAMINE MALEATE
     Route: 065

REACTIONS (6)
  - Off label use [Unknown]
  - Hypersensitivity [Recovered/Resolved]
  - Hypoxia [Recovered/Resolved]
  - Product use in unapproved indication [Unknown]
  - Mucocutaneous rash [Recovered/Resolved]
  - Hypertension [Recovered/Resolved]

NARRATIVE: CASE EVENT DATE: 201610
